FAERS Safety Report 11194777 (Version 2)
Quarter: 2015Q2

REPORT INFORMATION
  Report Type: Spontaneous
  Country: US (occurrence: US)
  Receive Date: 20150617
  Receipt Date: 20150623
  Transmission Date: 20150821
  Serious: Yes (Hospitalization, Other)
  Sender: FDA-Public Use
  Company Number: US-ROCHE-1593876

PATIENT
  Sex: Male

DRUGS (6)
  1. METFORMIN [Concomitant]
     Active Substance: METFORMIN HYDROCHLORIDE
     Indication: DIABETES MELLITUS
  2. CARBOPLATIN. [Concomitant]
     Active Substance: CARBOPLATIN
  3. TAXOL [Concomitant]
     Active Substance: PACLITAXEL
  4. AVASTIN [Suspect]
     Active Substance: BEVACIZUMAB
     Indication: LUNG ADENOCARCINOMA METASTATIC
     Route: 065
     Dates: start: 201501
  5. GLIMEPIRIDE. [Concomitant]
     Active Substance: GLIMEPIRIDE
     Indication: DIABETES MELLITUS
  6. XARELTO [Concomitant]
     Active Substance: RIVAROXABAN
     Indication: ANTICOAGULANT THERAPY

REACTIONS (5)
  - Myocardial infarction [Unknown]
  - Basal cell carcinoma [Unknown]
  - Deep vein thrombosis [Unknown]
  - Unevaluable event [Unknown]
  - Dyspnoea [Unknown]

NARRATIVE: CASE EVENT DATE: 20150611
